FAERS Safety Report 15575630 (Version 1)
Quarter: 2018Q4

REPORT INFORMATION
  Report Type: Report from Study
  Country: DE (occurrence: DE)
  Receive Date: 20181101
  Receipt Date: 20181101
  Transmission Date: 20190205
  Serious: Yes (Other)
  Sender: FDA-Public Use
  Company Number: DE-ACTELION-A-CH2018-180870

PATIENT
  Age: 13 Year
  Sex: Female

DRUGS (2)
  1. TANGANIL [Concomitant]
     Active Substance: ACETYLLEUCINE
     Dosage: UNK
     Dates: start: 2015
  2. MIGLUSTAT CAPSULE 100 MG NPC EU [Suspect]
     Active Substance: MIGLUSTAT
     Indication: NIEMANN-PICK DISEASE
     Dosage: UNK
     Route: 048
     Dates: start: 2012

REACTIONS (11)
  - Tremor [Unknown]
  - General physical health deterioration [Unknown]
  - Ataxia [Unknown]
  - Seizure [Unknown]
  - Monoplegia [Unknown]
  - Fatigue [Unknown]
  - Dysphagia [Unknown]
  - Hepatomegaly [Unknown]
  - Hepatosplenomegaly [Unknown]
  - Slow speech [Unknown]
  - Mental impairment [Unknown]

NARRATIVE: CASE EVENT DATE: 2013
